FAERS Safety Report 9086432 (Version 1)
Quarter: 2013Q1

REPORT INFORMATION
  Report Type: Report from Study
  Country: US (occurrence: US)
  Receive Date: 20130130
  Receipt Date: 20130130
  Transmission Date: 20140127
  Serious: Yes (Hospitalization, Other)
  Sender: FDA-Public Use
  Company Number: US-ABBOTT-12P-163-0989116-00

PATIENT
  Age: 57 Year
  Sex: Female

DRUGS (2)
  1. HUMIRA [Suspect]
     Indication: COLITIS ULCERATIVE
     Dates: start: 20120827, end: 20120827
  2. HUMIRA [Suspect]
     Dates: start: 20120910, end: 20120910

REACTIONS (5)
  - Colitis ulcerative [Recovering/Resolving]
  - Colitis [Recovering/Resolving]
  - Fatigue [Unknown]
  - Dehydration [Unknown]
  - Dark circles under eyes [Unknown]
